FAERS Safety Report 14199717 (Version 1)
Quarter: 2017Q4

REPORT INFORMATION
  Report Type: Spontaneous
  Country: JP (occurrence: JP)
  Receive Date: 20171117
  Receipt Date: 20171117
  Transmission Date: 20180321
  Serious: Yes (Hospitalization)
  Sender: FDA-Public Use
  Company Number: JP-JNJFOC-20171118910

PATIENT
  Age: 91 Year

DRUGS (3)
  1. TRAMAL [Suspect]
     Active Substance: TRAMADOL
     Indication: FIBROMYALGIA
     Route: 048
  2. CALONAL [Concomitant]
     Active Substance: ACETAMINOPHEN
     Indication: PRODUCT USED FOR UNKNOWN INDICATION
     Route: 048
  3. LYRICA [Concomitant]
     Active Substance: PREGABALIN
     Indication: PRODUCT USED FOR UNKNOWN INDICATION
     Route: 048

REACTIONS (4)
  - Nausea [Unknown]
  - Hypoaesthesia [Unknown]
  - Asthma [Unknown]
  - Vomiting [Unknown]
